FAERS Safety Report 7400466-9 (Version None)
Quarter: 2011Q1

REPORT INFORMATION
  Report Type: 
  Country: None (occurrence: None)
  Receive Date: 20110329
  Receipt Date: 20110323
  Transmission Date: 20110831
  Serious: Yes (Life-Threatening)
  Sender: FDA-Public Use
  Company Number: 2011TJ0006

PATIENT
  Age: 32 Year
  Sex: Female

DRUGS (7)
  1. METFORMIN HCL [Concomitant]
  2. SOMA [Concomitant]
  3. EPINEPHRINE [Suspect]
     Indication: ANAPHYLACTIC REACTION
     Dosage: 0.3 MG, AS NEEDED
     Dates: start: 20110304, end: 20110304
  4. LISINOPRIL [Concomitant]
  5. OXYCODONE [Concomitant]
  6. HUMULIN R [Concomitant]
  7. CYMBALTA [Concomitant]

REACTIONS (2)
  - DEVICE MALFUNCTION [None]
  - PRODUCT QUALITY ISSUE [None]
